FAERS Safety Report 15538332 (Version 3)
Quarter: 2018Q4

REPORT INFORMATION
  Report Type: Spontaneous
  Country: US (occurrence: US)
  Receive Date: 20181022
  Receipt Date: 20181221
  Transmission Date: 20190205
  Serious: No
  Sender: FDA-Public Use
  Company Number: US-PFIZER INC-2018427133

PATIENT
  Age: 60 Year
  Sex: Female

DRUGS (1)
  1. SUTENT [Suspect]
     Active Substance: SUNITINIB MALATE
     Indication: IRON DEFICIENCY ANAEMIA
     Dosage: 37.5 MG, CYCLIC(DAILY FOR 21 DAYS )(7 DAYS OFF)
     Route: 048
     Dates: start: 20180918

REACTIONS (4)
  - Oral herpes [Unknown]
  - Limb discomfort [Unknown]
  - Tongue discomfort [Unknown]
  - Product use in unapproved indication [Unknown]

NARRATIVE: CASE EVENT DATE: 2018
